FAERS Safety Report 10666707 (Version 1)
Quarter: 2014Q4

REPORT INFORMATION
  Report Type: Spontaneous
  Country: FR (occurrence: FR)
  Receive Date: 20141222
  Receipt Date: 20141222
  Transmission Date: 20150529
  Serious: Yes (Other)
  Sender: FDA-Public Use
  Company Number: FR-AMGEN-FRASP2014098876

PATIENT
  Age: 38 Year
  Sex: Female

DRUGS (7)
  1. LEVOTHYROX [Concomitant]
     Active Substance: LEVOTHYROXINE
     Dosage: UNK
  2. OXEOL [Concomitant]
     Dosage: UNK
  3. ENBREL [Suspect]
     Active Substance: ETANERCEPT
     Indication: PRODUCT USED FOR UNKNOWN INDICATION
     Dosage: 25 MG, WEEKLY
     Route: 058
     Dates: start: 20040305, end: 200512
  4. LYSANXIA [Concomitant]
     Active Substance: PRAZEPAM
     Dosage: UNK
  5. SERETIDE [Concomitant]
     Active Substance: FLUTICASONE FUROATE\SALMETEROL XINAFOATE
     Dosage: UNK
  6. DEROXAT [Concomitant]
     Active Substance: PAROXETINE HYDROCHLORIDE
     Dosage: UNK
  7. HAVLANE [Concomitant]
     Active Substance: LOPRAZOLAM
     Dosage: UNK

REACTIONS (6)
  - Musculoskeletal stiffness [Unknown]
  - Drug ineffective [Unknown]
  - Pain [Unknown]
  - Asthma [Recovered/Resolved]
  - Infection [Unknown]
  - Middle insomnia [Unknown]

NARRATIVE: CASE EVENT DATE: 2004
